FAERS Safety Report 8504684-8 (Version None)
Quarter: 2012Q3

REPORT INFORMATION
  Report Type: 
  Country: None (occurrence: None)
  Receive Date: 20120711
  Receipt Date: 20120705
  Transmission Date: 20120928
  Serious: Yes (Death, Other)
  Sender: FDA-Public Use
  Company Number: US-ROCHE-705143

PATIENT
  Sex: Female
  Weight: 31.8 kg

DRUGS (32)
  1. XELODA [Suspect]
     Route: 048
  2. FLUOROURACIL [Suspect]
     Dosage: BOLUS
     Route: 065
     Dates: start: 20090527, end: 20090901
  3. AVASTIN [Suspect]
     Route: 042
  4. AVASTIN [Suspect]
     Route: 042
     Dates: start: 20081218, end: 20090107
  5. OXALIPLATIN [Suspect]
     Route: 042
     Dates: start: 20080601, end: 20080601
  6. DEXAMETHASONE [Concomitant]
  7. XELODA [Suspect]
     Indication: COLORECTAL CANCER METASTATIC
     Dosage: TWO CYCLES
     Route: 048
     Dates: start: 20081218, end: 20090107
  8. AVASTIN [Suspect]
     Indication: COLORECTAL CANCER METASTATIC
     Route: 042
  9. AVASTIN [Suspect]
     Route: 042
     Dates: start: 20070801, end: 20070901
  10. AVASTIN [Suspect]
     Route: 042
     Dates: start: 20090128, end: 20090513
  11. OXALIPLATIN [Suspect]
     Dosage: 7 CYCLES
     Route: 042
  12. OXALIPLATIN [Suspect]
     Route: 042
  13. FLUOROURACIL [Suspect]
     Indication: COLORECTAL CANCER METASTATIC
     Dosage: 7 CYCLES
     Route: 065
     Dates: start: 20090128, end: 20090513
  14. OXALIPLATIN [Suspect]
     Route: 042
  15. OXALIPLATIN [Suspect]
     Route: 042
     Dates: start: 20090513, end: 20090513
  16. XELODA [Suspect]
     Route: 048
  17. AVASTIN [Suspect]
     Route: 042
  18. OXALIPLATIN [Suspect]
     Indication: COLORECTAL CANCER METASTATIC
     Route: 042
  19. FOLINIC ACID [Suspect]
     Route: 065
     Dates: start: 20090527, end: 20090901
  20. OXALIPLATIN [Suspect]
     Route: 042
     Dates: start: 20081218, end: 20081218
  21. FLUOROURACIL [Suspect]
     Route: 065
  22. FOLINIC ACID [Suspect]
     Indication: COLORECTAL CANCER METASTATIC
     Dosage: 7 CYCLES
     Route: 065
     Dates: start: 20090128, end: 20090513
  23. IRINOTECAN HYDROCHLORIDE [Suspect]
     Indication: COLORECTAL CANCER METASTATIC
     Route: 065
     Dates: start: 20100101
  24. ZOFRAN [Concomitant]
     Dosage: FORM: SOLUTION FOR INFUSION
  25. PRILOSEC [Concomitant]
  26. AVASTIN [Suspect]
     Route: 042
  27. OXALIPLATIN [Suspect]
     Route: 042
  28. OXALIPLATIN [Suspect]
     Dosage: DOSE LOWERED
     Route: 042
  29. FOLINIC ACID [Suspect]
     Route: 065
  30. XELODA [Suspect]
     Dosage: TWO TABLETS IN MORNING
     Route: 048
  31. AVASTIN [Suspect]
     Route: 042
     Dates: start: 20090527, end: 20090901
  32. OXALIPLATIN [Suspect]
     Route: 042

REACTIONS (34)
  - WOUND DEHISCENCE [None]
  - PAIN IN EXTREMITY [None]
  - BACK PAIN [None]
  - EPISTAXIS [None]
  - SKIN EXFOLIATION [None]
  - ABDOMINAL DISTENSION [None]
  - PAIN IN JAW [None]
  - LUNG DISORDER [None]
  - FATIGUE [None]
  - ASCITES [None]
  - DECREASED APPETITE [None]
  - INCORRECT DOSE ADMINISTERED [None]
  - ABDOMINAL PAIN UPPER [None]
  - PARAESTHESIA [None]
  - STOMATITIS [None]
  - DRUG HYPERSENSITIVITY [None]
  - DEFORMITY [None]
  - METASTASES TO SPINE [None]
  - EATING DISORDER [None]
  - DRUG INTOLERANCE [None]
  - SKIN IRRITATION [None]
  - TOXICITY TO VARIOUS AGENTS [None]
  - DEATH [None]
  - NEOPLASM MALIGNANT [None]
  - NEPHROLITHIASIS [None]
  - NEUROPATHY PERIPHERAL [None]
  - WEIGHT DECREASED [None]
  - FLANK PAIN [None]
  - TREMOR [None]
  - LIMB DEFORMITY [None]
  - PRODUCT COUNTERFEIT [None]
  - VOMITING [None]
  - ABDOMINAL DISCOMFORT [None]
  - WHITE BLOOD CELL COUNT DECREASED [None]
